FAERS Safety Report 9384203 (Version 1)
Quarter: 2013Q3

REPORT INFORMATION
  Report Type: Spontaneous
  Country: US (occurrence: None)
  Receive Date: 20130702
  Receipt Date: 20130702
  Transmission Date: 20140515
  Serious: Yes (Hospitalization)
  Sender: FDA-Public Use
  Company Number: None

PATIENT
  Age: 84 Year
  Sex: Male
  Weight: 65.8 kg

DRUGS (1)
  1. XARELTO [Suspect]
     Indication: ATRIAL FIBRILLATION
     Route: 048
     Dates: start: 20130422, end: 20130510

REACTIONS (5)
  - Gastrointestinal haemorrhage [None]
  - Haemoglobin decreased [None]
  - Haematocrit decreased [None]
  - Large intestine polyp [None]
  - Haemorrhoids [None]
